FAERS Safety Report 4686763-9 (Version None)
Quarter: 2005Q2

REPORT INFORMATION
  Report Type: 
  Country: None (occurrence: None)
  Receive Date: 20050608
  Receipt Date: 20050523
  Transmission Date: 20051028
  Serious: Yes (Death, Hospitalization)
  Sender: FDA-Public Use
  Company Number: S04-FRA-02012-01

PATIENT
  Age: 82 Year
  Sex: Female

DRUGS (6)
  1. EBIXA (MEMANTINE) [Suspect]
     Dosage: 20 MG QD PO
     Route: 048
     Dates: start: 20031015, end: 20040325
  2. MOTILIUM ^BYK GULDEN^ (DOMPERIDONE) [Suspect]
     Dosage: 12 MG TID PO
     Route: 048
     Dates: start: 20030601, end: 20040325
  3. TIAPRIDAL (TIAPRIDE) [Suspect]
     Dates: start: 20031015, end: 20040325
  4. ESOMEPRAZOLE [Suspect]
     Dosage: 20 MG QD PO
     Route: 048
     Dates: start: 20031121, end: 20040325
  5. CORDARONE [Suspect]
     Dosage: 200 MG QD PO
     Route: 048
     Dates: start: 20030301, end: 20040325
  6. FUROSEMIDE [Suspect]
     Dosage: 20 MG QD PO
     Route: 048
     Dates: start: 20040130, end: 20040325

REACTIONS (6)
  - CONDITION AGGRAVATED [None]
  - DEMENTIA ALZHEIMER'S TYPE [None]
  - FEBRILE NEUTROPENIA [None]
  - LUNG INFECTION [None]
  - SEPTIC SHOCK [None]
  - WHITE BLOOD CELL COUNT DECREASED [None]
